FAERS Safety Report 10203482 (Version 1)
Quarter: 2014Q2

REPORT INFORMATION
  Report Type: Spontaneous
  Country: CA (occurrence: None)
  Receive Date: 20140523
  Receipt Date: 20140523
  Transmission Date: 20141212
  Serious: Yes (Other)
  Sender: FDA-Public Use
  Company Number: 2014000151

PATIENT
  Age: 47 Year
  Sex: Female

DRUGS (3)
  1. ACEON (PERINDOPRIL ERBUMINE) TABLET, 4MG [Suspect]
     Indication: PRODUCT USED FOR UNKNOWN INDICATION
     Route: 048
  2. ADVAIR (FLUTICASONE PROPIONATE, SALMETEROL XINAFOATE) [Concomitant]
  3. NAPROXEN (NAPROXEN) [Concomitant]

REACTIONS (2)
  - Vaginal haemorrhage [None]
  - Dizziness [None]
